FAERS Safety Report 12553044 (Version 2)
Quarter: 2016Q3

REPORT INFORMATION
  Report Type: Spontaneous
  Country: CN (occurrence: CN)
  Receive Date: 20160713
  Receipt Date: 20160719
  Transmission Date: 20161109
  Serious: Yes (Other)
  Sender: FDA-Public Use
  Company Number: CN-PFIZER INC-2016336360

PATIENT
  Age: 77 Year
  Sex: Female
  Weight: 62 kg

DRUGS (1)
  1. CEFOBID [Suspect]
     Active Substance: CEFOPERAZONE
     Indication: URINARY TRACT INFECTION
     Dosage: 2 G, 2X/DAY
     Route: 041
     Dates: start: 20160111, end: 20160111

REACTIONS (3)
  - Ocular hyperaemia [Recovering/Resolving]
  - Palpitations [Recovering/Resolving]
  - Erythema [Recovering/Resolving]

NARRATIVE: CASE EVENT DATE: 20160111
